FAERS Safety Report 10090115 (Version 1)
Quarter: 2014Q2

REPORT INFORMATION
  Report Type: Spontaneous
  Country: US (occurrence: US)
  Receive Date: 20140421
  Receipt Date: 20140421
  Transmission Date: 20141212
  Serious: No
  Sender: FDA-Public Use
  Company Number: US-PFIZER INC-2014110410

PATIENT
  Age: 57 Year
  Sex: Female
  Weight: 65.76 kg

DRUGS (2)
  1. LYRICA [Suspect]
     Indication: NEUROPATHY PERIPHERAL
     Dosage: 75 MG, 2X/DAY
     Dates: start: 2009
  2. CYMBALTA [Concomitant]
     Dosage: UNK

REACTIONS (1)
  - Somnolence [Unknown]
